FAERS Safety Report 4336783-9 (Version None)
Quarter: 2004Q2

REPORT INFORMATION
  Report Type: 
  Country: None (occurrence: None)
  Receive Date: 20040408
  Receipt Date: 20040331
  Transmission Date: 20050107
  Serious: Yes (Disabling)
  Sender: FDA-Public Use
  Company Number: ZONI001348

PATIENT
  Age: 43 Year
  Sex: Female

DRUGS (2)
  1. ZONEGRAN [Suspect]
     Indication: RADICULOPATHY
     Dosage: 100 MG DAILY ORAL
     Route: 048
     Dates: start: 20031209, end: 20040309
  2. ULTRACET [Suspect]
     Indication: PAIN
     Dosage: 1 TABLET DAILY
     Dates: start: 20030507

REACTIONS (9)
  - AGITATION [None]
  - BALANCE DISORDER [None]
  - CLUMSINESS [None]
  - DIZZINESS [None]
  - DYSARTHRIA [None]
  - DYSCALCULIA [None]
  - FEELING ABNORMAL [None]
  - MENTAL IMPAIRMENT [None]
  - SPEECH DISORDER [None]
